FAERS Safety Report 6802779-8 (Version None)
Quarter: 2010Q2

REPORT INFORMATION
  Report Type: 
  Country: None (occurrence: None)
  Receive Date: 20100628
  Receipt Date: 20100614
  Transmission Date: 20101027
  Serious: Yes (Hospitalization, Other)
  Sender: FDA-Public Use
  Company Number: ES-ELI_LILLY_AND_COMPANY-ES201006003754

PATIENT
  Sex: Female
  Weight: 93.5 kg

DRUGS (12)
  1. FORTEO [Suspect]
     Indication: OSTEOPOROSIS
     Dosage: 20 UG, DAILY (1/D)
     Route: 058
     Dates: start: 20091113
  2. VALSARTAN [Concomitant]
     Indication: HYPERTENSION
     Dosage: UNK, DAILY (1/D)
     Route: 048
  3. SUTRIL [Concomitant]
     Indication: HYPERTENSION
     Dosage: UNK, DAILY (1/D)
     Route: 048
  4. SALAGEN [Concomitant]
     Indication: SJOGREN'S SYNDROME
     Dosage: 2-4 UNK, DAILY (1/D)
     Route: 048
  5. MENTIS [Concomitant]
     Dosage: UNK, UNKNOWN
     Route: 048
  6. ALAPRIL [Concomitant]
     Indication: DEPRESSION
     Dosage: UNK, DAILY (1/D)
     Route: 048
  7. DOBUPAL [Concomitant]
     Indication: DEPRESSION
     Dosage: 75 MG, DAILY (1/D)
     Route: 048
  8. ANTIDEPRESSANTS [Concomitant]
     Indication: DEPRESSION
     Dosage: UNK, EVERY 12 HOURS
     Route: 048
  9. ENANTYUM [Concomitant]
     Indication: PAIN
     Dosage: UNK, DAILY (1/D)
     Route: 048
  10. DABIGATRAN ETEXILATE [Concomitant]
     Indication: PAIN
     Dosage: UNK, 2/D
     Route: 048
  11. ZALDIAR [Concomitant]
     Indication: PAIN
     Dosage: UNK, AS NEEDED
     Route: 048
  12. PANTECTA [Concomitant]
     Dosage: 40 MG, DAILY (1/D)
     Route: 048

REACTIONS (3)
  - FALL [None]
  - HUMERUS FRACTURE [None]
  - MEDICATION ERROR [None]
